FAERS Safety Report 16706074 (Version 1)
Quarter: 2019Q3

REPORT INFORMATION
  Report Type: Spontaneous
  Country: PR (occurrence: PR)
  Receive Date: 20190815
  Receipt Date: 20190815
  Transmission Date: 20191004
  Serious: No
  Sender: FDA-Public Use
  Company Number: PR-PFIZER INC-2019345540

PATIENT
  Age: 56 Year
  Sex: Female

DRUGS (1)
  1. AROMASIN [Suspect]
     Active Substance: EXEMESTANE
     Dosage: 25 MG, DAILY
     Dates: start: 20170525

REACTIONS (5)
  - Hot flush [Unknown]
  - Breast pain [Unknown]
  - Arthralgia [Unknown]
  - Dysaesthesia [Recovering/Resolving]
  - Breast discomfort [Recovering/Resolving]
